FAERS Safety Report 6956342-9 (Version None)
Quarter: 2010Q3

REPORT INFORMATION
  Report Type: 
  Country: None (occurrence: None)
  Receive Date: 20100830
  Receipt Date: 20100823
  Transmission Date: 20110219
  Serious: Yes (Hospitalization)
  Sender: FDA-Public Use
  Company Number: A0859779A

PATIENT
  Age: 33 Year
  Sex: Female

DRUGS (9)
  1. LAMICTAL [Suspect]
     Indication: EPILEPSY
     Dosage: 300MG TWICE PER DAY
     Route: 048
     Dates: start: 19940101
  2. DILANTIN [Suspect]
     Indication: EPILEPSY
     Route: 065
  3. PHENOBARBITAL [Suspect]
     Indication: EPILEPSY
     Route: 065
  4. CALTRATE [Concomitant]
  5. VITAMIN E [Concomitant]
  6. PYRIDOXINE HCL [Concomitant]
  7. VITAMIN B-12 [Concomitant]
  8. LODRANE [Concomitant]
  9. UNSPECIFIED MEDICATION [Concomitant]

REACTIONS (18)
  - ANTICONVULSANT DRUG LEVEL ABOVE THERAPEUTIC [None]
  - BACK PAIN [None]
  - BLOOD GLUCOSE INCREASED [None]
  - DIZZINESS [None]
  - DRUG INTERACTION [None]
  - DRUG LEVEL DECREASED [None]
  - DYSKINESIA [None]
  - HYPOAESTHESIA [None]
  - ILL-DEFINED DISORDER [None]
  - IMMOBILE [None]
  - MIDDLE INSOMNIA [None]
  - NAUSEA [None]
  - SKIN DISCOLOURATION [None]
  - STARING [None]
  - TREMOR [None]
  - VISUAL IMPAIRMENT [None]
  - VOMITING [None]
  - WEIGHT DECREASED [None]
